FAERS Safety Report 15970977 (Version 2)
Quarter: 2020Q3

REPORT INFORMATION
  Report Type: Spontaneous
  Country: US (occurrence: US)
  Receive Date: 20190215
  Receipt Date: 20200729
  Transmission Date: 20201102
  Serious: Yes (Other)
  Sender: FDA-Public Use
  Company Number: PHEH2019US006828

PATIENT
  Sex: Male

DRUGS (1)
  1. TASIGNA [Suspect]
     Active Substance: NILOTINIB
     Indication: CHRONIC MYELOID LEUKAEMIA
     Dosage: UNK UNK, BID
     Route: 065
     Dates: start: 20101101, end: 2018

REACTIONS (15)
  - Arteriosclerosis [Unknown]
  - Deafness [Unknown]
  - Coronary artery disease [Unknown]
  - Injury [Unknown]
  - Gastrooesophageal reflux disease [Unknown]
  - Pain [Unknown]
  - Erectile dysfunction [Unknown]
  - Peripheral vascular disorder [Unknown]
  - Mitral valve incompetence [Unknown]
  - Benign prostatic hyperplasia [Unknown]
  - Anxiety [Unknown]
  - Emotional distress [Unknown]
  - Sarcoidosis [Unknown]
  - Hypothyroidism [Unknown]
  - Hyperlipidaemia [Unknown]
